FAERS Safety Report 5535801-X (Version None)
Quarter: 2007Q4

REPORT INFORMATION
  Report Type: 
  Country: None (occurrence: None)
  Receive Date: 20071206
  Receipt Date: 20071205
  Transmission Date: 20080405
  Serious: Yes (Death, Hospitalization)
  Sender: FDA-Public Use
  Company Number: A0694283A

PATIENT
  Age: 78 Year
  Sex: Male
  Weight: 63.6 kg

DRUGS (14)
  1. PAXIL [Suspect]
     Indication: EXCESSIVE SEXUAL FANTASIES
     Dosage: 20MG PER DAY
     Route: 048
     Dates: start: 20070920, end: 20071015
  2. LUPRON [Suspect]
     Indication: EXCESSIVE SEXUAL FANTASIES
     Dosage: .5MG PER DAY
     Route: 058
     Dates: start: 20070920, end: 20071015
  3. PLAVIX [Concomitant]
     Indication: CORONARY ARTERY DISEASE
     Dosage: 75MG PER DAY
     Route: 048
  4. MULTI-VITAMIN [Concomitant]
     Indication: SUPPLEMENTATION THERAPY
     Dosage: 1TAB PER DAY
     Route: 048
  5. NEXIUM [Concomitant]
     Indication: ILL-DEFINED DISORDER
     Dosage: 40MG PER DAY
     Route: 048
  6. LOVASTATIN [Concomitant]
     Dosage: 20MG PER DAY
     Route: 048
  7. OMEGA 3 FATTY ACIDS [Concomitant]
  8. ENALAPRIL [Concomitant]
     Indication: HYPERTENSION
  9. ASCORBIC ACID [Concomitant]
     Indication: SUPPLEMENTATION THERAPY
  10. TYLENOL [Concomitant]
  11. MILK OF MAGNESIA [Concomitant]
  12. DULCOLAX [Concomitant]
  13. SODIUM PHOSPHATES [Concomitant]
  14. INDERAL [Concomitant]
     Indication: HYPERTENSION

REACTIONS (9)
  - ASTHENIA [None]
  - CARDIAC ARREST [None]
  - CHROMATURIA [None]
  - CONTUSION [None]
  - FALL [None]
  - HYPERHIDROSIS [None]
  - MYOCARDIAL INFARCTION [None]
  - URINARY INCONTINENCE [None]
  - URINARY TRACT INFECTION [None]
